FAERS Safety Report 5764223-1 (Version None)
Quarter: 2008Q2

REPORT INFORMATION
  Report Type: 
  Country: None (occurrence: None)
  Receive Date: 20080604
  Receipt Date: 20080521
  Transmission Date: 20081010
  Serious: Yes (Hospitalization)
  Sender: FDA-Public Use
  Company Number: 2008AL005678

PATIENT
  Age: 55 Year
  Sex: Male
  Weight: 90.7194 kg

DRUGS (1)
  1. DIGOXIN [Suspect]
     Dosage: 0.25MG PO QD
     Route: 048

REACTIONS (3)
  - CHEST PAIN [None]
  - PYREXIA [None]
  - URINARY TRACT INFECTION [None]
